FAERS Safety Report 17113505 (Version 1)
Quarter: 2019Q4

REPORT INFORMATION
  Report Type: Spontaneous
  Country: HR (occurrence: HR)
  Receive Date: 20191205
  Receipt Date: 20191205
  Transmission Date: 20200122
  Serious: Yes (Other)
  Sender: FDA-Public Use
  Company Number: HR-AMGEN-HRVSP2019200793

PATIENT
  Age: 67 Year
  Sex: Male
  Weight: 99 kg

DRUGS (15)
  1. PANITUMUMAB [Suspect]
     Active Substance: PANITUMUMAB
     Indication: ADENOCARCINOMA OF COLON
     Dosage: UNK UNK, CYCLICAL
     Route: 065
     Dates: start: 20180611, end: 2018
  2. FOLINIC ACID [Concomitant]
     Active Substance: LEUCOVORIN
     Indication: ADENOCARCINOMA OF COLON
     Dosage: UNK UNK, CYCLICAL
     Dates: start: 20180514
  3. BETOPTIC [Concomitant]
     Active Substance: BETAXOLOL HYDROCHLORIDE
     Dosage: UNK UNK, BID (1 DROP) EYE-DROP IN BOTH EYES
  4. DOXYCYCLINE. [Concomitant]
     Active Substance: DOXYCYCLINE
     Indication: ERYTHEMA
  5. DOXYCYCLINE. [Concomitant]
     Active Substance: DOXYCYCLINE
     Indication: SKIN EXFOLIATION
  6. AMLOPIN [AMLODIPINE] [Concomitant]
     Dosage: 5 MILLIGRAM, QD
  7. MOXAVIV [Concomitant]
     Active Substance: MOXONIDINE
     Dosage: 0.4 MILLIGRAM
  8. DOXYCYCLINE. [Concomitant]
     Active Substance: DOXYCYCLINE
     Indication: PROPHYLAXIS
     Dosage: 100 MILLIGRAM, QD/ (AT EVEINING FOR THREE WEEKS)
     Dates: start: 2018
  9. IRINOTECAN [Concomitant]
     Active Substance: IRINOTECAN
     Indication: ADENOCARCINOMA OF COLON
     Dosage: UNK, CYCLICAL
     Dates: start: 20180514
  10. ARTICEL [Concomitant]
     Dosage: 5 MILLIGRAM, QD
  11. NORPREXANIL [Concomitant]
     Active Substance: UNSPECIFIED INGREDIENT
     Dosage: 1 DOSAGE FORM, QD
  12. NORMABEL [Concomitant]
     Active Substance: DIAZEPAM
     Dosage: 5 MILLIGRAM, QD
  13. NITROGLYCERIN. [Concomitant]
     Active Substance: NITROGLYCERIN
     Dosage: UNK
     Route: 060
  14. 5-FU [FLUOROURACIL] [Concomitant]
     Active Substance: FLUOROURACIL
     Indication: ADENOCARCINOMA OF COLON
     Dosage: UNK UNK, CYCLICAL
     Dates: start: 20180514
  15. DOXYCYCLINE. [Concomitant]
     Active Substance: DOXYCYCLINE
     Indication: PAPULE

REACTIONS (3)
  - Rash papular [Unknown]
  - Exfoliative rash [Unknown]
  - Adenocarcinoma of colon [Not Recovered/Not Resolved]

NARRATIVE: CASE EVENT DATE: 2018
